FAERS Safety Report 7995926-6 (Version None)
Quarter: 2011Q4

REPORT INFORMATION
  Report Type: 
  Country: None (occurrence: None)
  Receive Date: 20111220
  Receipt Date: 20111215
  Transmission Date: 20120403
  Serious: Yes (Death)
  Sender: FDA-Public Use
  Company Number: US-ASTRAZENECA-2011SE76181

PATIENT
  Age: 46 Year
  Sex: Male

DRUGS (1)
  1. ACCOLATE [Suspect]
     Route: 048

REACTIONS (1)
  - DEATH [None]
